FAERS Safety Report 6541247-8 (Version None)
Quarter: 2010Q1

REPORT INFORMATION
  Report Type: 
  Country: None (occurrence: None)
  Receive Date: 20100118
  Receipt Date: 20100108
  Transmission Date: 20100710
  Serious: Yes (Other)
  Sender: FDA-Public Use
  Company Number: MX-ELI_LILLY_AND_COMPANY-MX201001001430

PATIENT
  Age: 55 Year
  Sex: Male
  Weight: 75 kg

DRUGS (8)
  1. HUMALOG MIX 75/25 [Suspect]
     Indication: TYPE 2 DIABETES MELLITUS
     Dosage: 22 IU, EACH MORNING
     Route: 065
     Dates: start: 20081201
  2. HUMALOG MIX 75/25 [Suspect]
     Dosage: 24 IU, EACH EVENING
     Route: 065
     Dates: start: 20081201
  3. HUMALOG MIX 75/25 [Suspect]
     Dosage: 38 IU, 2/D
     Route: 058
  4. HUMALOG MIX 75/25 [Suspect]
     Dosage: 20 IU, EACH EVENING
     Route: 058
  5. METICORTEN [Concomitant]
     Indication: LUNG DISORDER
     Dosage: 20 MG, EACH MORNING
     Route: 065
  6. COLCHICINE [Concomitant]
     Indication: LUNG DISORDER
     Dosage: 1 MG, 2/D
     Route: 065
  7. DIOVAN HCT [Concomitant]
     Indication: HYPERTENSION
     Dosage: UNK, UNKNOWN
     Route: 065
  8. VITAMIN C [Concomitant]
     Dosage: 1 G, DAILY (1/D)
     Route: 065

REACTIONS (8)
  - HYPERGLYCAEMIA [None]
  - INJECTION SITE HAEMORRHAGE [None]
  - LUNG DISORDER [None]
  - OROPHARYNGEAL SWELLING [None]
  - PNEUMONITIS CHEMICAL [None]
  - PULMONARY GRANULOMA [None]
  - PULMONARY OEDEMA [None]
  - WEIGHT INCREASED [None]
